FAERS Safety Report 8981359 (Version 2)
Quarter: 2013Q2

REPORT INFORMATION
  Report Type: Spontaneous
  Country: US (occurrence: US)
  Receive Date: 20121221
  Receipt Date: 20130412
  Transmission Date: 20140414
  Serious: Yes (Hospitalization)
  Sender: FDA-Public Use
  Company Number: US-BAYER-2012-132993

PATIENT
  Age: 23 Year
  Sex: Female
  Weight: 55.3 kg

DRUGS (7)
  1. YAZ [Suspect]
     Indication: CONTRACEPTION
     Dosage: UNK UNK, TID FOR 3 DAYS
     Dates: start: 200908, end: 200910
  2. YASMIN [Suspect]
     Dosage: UNK
     Dates: start: 200908, end: 200910
  3. OCELLA [Suspect]
     Dosage: UNK
     Dates: start: 200908, end: 200910
  4. NAPROXEN [Concomitant]
     Dosage: UNK
     Dates: start: 20091210
  5. OXYCODONE W/PARACETAMOL [Concomitant]
     Dosage: UNK
     Dates: start: 20091210
  6. PRENATAL VITAMINS [Concomitant]
  7. ULTRAM [Concomitant]

REACTIONS (11)
  - Thrombosis [None]
  - Ectopic pregnancy [None]
  - Injury [None]
  - Emotional distress [None]
  - Pain [None]
  - Drug ineffective [None]
  - Pain [None]
  - Abdominal pain lower [None]
  - Vaginal haemorrhage [None]
  - Depression [None]
  - Mental disorder [None]
